FAERS Safety Report 23762398 (Version 2)
Quarter: 2024Q2

REPORT INFORMATION
  Report Type: Spontaneous
  Country: US (occurrence: US)
  Receive Date: 20240419
  Receipt Date: 20240520
  Transmission Date: 20240716
  Serious: Yes (Other)
  Sender: FDA-Public Use
  Company Number: US-PFIZER INC-202400087894

PATIENT
  Age: 85 Year
  Sex: Female
  Weight: 80.726 kg

DRUGS (1)
  1. IBRANCE [Suspect]
     Active Substance: PALBOCICLIB
     Indication: Breast cancer metastatic
     Dosage: 2 WEEKS ON AND 2 WEEKS OFF
     Route: 048
     Dates: start: 20240415

REACTIONS (5)
  - Nephritis [Unknown]
  - Cystitis noninfective [Unknown]
  - Off label use [Unknown]
  - Product use issue [Unknown]
  - Urinary tract infection [Unknown]

NARRATIVE: CASE EVENT DATE: 20240101
